FAERS Safety Report 5959013-0 (Version None)
Quarter: 2008Q4

REPORT INFORMATION
  Report Type: 
  Country: None (occurrence: None)
  Receive Date: 20081112
  Receipt Date: 20080903
  Transmission Date: 20090506
  Serious: Yes (Other)
  Sender: FDA-Public Use
  Company Number: 1000000603

PATIENT
  Age: 77 Year
  Sex: Female

DRUGS (10)
  1. TIAZAC [Suspect]
     Indication: HYPERTENSION
     Dosage: 300 MG (300 MG, 1 IN 1 D), ORAL
     Route: 048
     Dates: start: 20040101
  2. BYSTOLIC [Suspect]
     Indication: HYPERTENSION
     Dosage: 5 MG (5 MG, 1 IN 1 D), ORAL
     Route: 048
     Dates: start: 20080701
  3. FLOVENT (INHALANT) [Concomitant]
  4. PROVENTIL (INHALANT) [Concomitant]
  5. DYAZIDE( 37.5 MILLIGRAM) [Concomitant]
  6. SYNTHROID [Concomitant]
  7. CLARITIN [Concomitant]
  8. LOVASTATIN [Concomitant]
  9. POTASSIUM CHLORIDE [Concomitant]
  10. NASAL SPRAY (NOS) (NASAL DROPS (INCLUDING NASAL SPRAY) [Concomitant]

REACTIONS (6)
  - DYSPNOEA [None]
  - FALL [None]
  - HEART RATE DECREASED [None]
  - HYPERTENSION [None]
  - HYPOTENSION [None]
  - NERVOUSNESS [None]
